FAERS Safety Report 20316082 (Version 1)
Quarter: 2022Q1

REPORT INFORMATION
  Report Type: Spontaneous
  Country: US (occurrence: US)
  Receive Date: 20220110
  Receipt Date: 20220110
  Transmission Date: 20220423
  Serious: No
  Sender: FDA-Public Use
  Company Number: US-TWI PHARMACEUTICAL, INC-2021SCTW000070

PATIENT

DRUGS (2)
  1. NIFEDIPINE [Suspect]
     Active Substance: NIFEDIPINE
     Indication: Hypertension
     Dosage: 1 TABLET ONCE A DAY AT 5 IN THE EVENING
     Route: 048
     Dates: start: 20211212
  2. LISINOPRIL AND HYDROCHLOROTHIAZIDE [Concomitant]
     Active Substance: HYDROCHLOROTHIAZIDE\LISINOPRIL
     Indication: Hypertension
     Dosage: 1 TABLET, OD IN THE MORNING
     Route: 048

REACTIONS (3)
  - Product residue present [Unknown]
  - Drug delivery system issue [Unknown]
  - Drug ineffective [Unknown]

NARRATIVE: CASE EVENT DATE: 20211213
